FAERS Safety Report 8173064-X (Version None)
Quarter: 2012Q1

REPORT INFORMATION
  Report Type: 
  Country: None (occurrence: None)
  Receive Date: 20120223
  Receipt Date: 20120208
  Transmission Date: 20120608
  Serious: No
  Sender: FDA-Public Use
  Company Number: ENDC20120010

PATIENT
  Age: 75 Year
  Sex: Female
  Weight: 91.6266 kg

DRUGS (3)
  1. OXYCODONE AND ACETAMINOPHEN [Suspect]
     Indication: PAIN
     Dosage: 50/1625 MG, 5 IN 1 D, ORAL
     Route: 048
     Dates: start: 20110901
  2. OXYCODONE AND ACETAMINOPHEN [Suspect]
     Indication: NERVE COMPRESSION
     Dosage: 50/1625 MG, 5 IN 1 D, ORAL
     Route: 048
     Dates: start: 20110901
  3. OXYCODONE AND ACETAMINOPHEN [Suspect]
     Indication: ARTHRITIS
     Dosage: 50/1625 MG, 5 IN 1 D, ORAL
     Route: 048
     Dates: start: 20110901

REACTIONS (2)
  - FEELING ABNORMAL [None]
  - DRUG INEFFECTIVE [None]
